FAERS Safety Report 8454373 (Version 3)
Quarter: 2013Q2

REPORT INFORMATION
  Report Type: Spontaneous
  Country: JP (occurrence: JP)
  Receive Date: 20120312
  Receipt Date: 20130503
  Transmission Date: 20140414
  Serious: Yes (Other)
  Sender: FDA-Public Use
  Company Number: PHHY2012JP019719

PATIENT
  Age: 86 Year
  Sex: Female

DRUGS (6)
  1. RIFAMPICIN [Suspect]
     Indication: INFECTION
     Route: 048
  2. MINOCYCLINE HYDROCHLORIDE [Concomitant]
     Indication: INFECTION
     Route: 048
  3. SULFAMETOXAZOL MED TRIMETOPRIM [Concomitant]
     Indication: INFECTION
     Route: 048
  4. VANCOMYCIN HYDROCHLORIDE [Concomitant]
     Indication: INFECTION
     Route: 048
  5. AMIKACIN SULFATE [Concomitant]
     Indication: INFECTION
  6. PREDONINE [Concomitant]
     Indication: POSTPARTUM HYPOPITUITARISM

REACTIONS (5)
  - Adrenal insufficiency [Recovering/Resolving]
  - Altered state of consciousness [Recovering/Resolving]
  - Hyponatraemia [Recovering/Resolving]
  - Diarrhoea [Recovering/Resolving]
  - Vomiting [Recovering/Resolving]
